FAERS Safety Report 21005260 (Version 1)
Quarter: 2022Q2

REPORT INFORMATION
  Report Type: Spontaneous
  Country: GB (occurrence: GB)
  Receive Date: 20220624
  Receipt Date: 20220624
  Transmission Date: 20220721
  Serious: Yes (Hospitalization)
  Sender: FDA-Public Use
  Company Number: GB-PFIZER INC-202200354575

PATIENT
  Sex: Male

DRUGS (14)
  1. FLUDARABINE [Suspect]
     Active Substance: FLUDARABINE PHOSPHATE
     Indication: Acute myeloid leukaemia
     Dosage: UNK, THERAPY DURATION : 5 DAYS
     Route: 065
     Dates: start: 20180607, end: 20180611
  2. IDARUBICIN HYDROCHLORIDE [Suspect]
     Active Substance: IDARUBICIN HYDROCHLORIDE
     Indication: Acute myeloid leukaemia
     Dosage: UNK, THERAPY DURATION : 5 DAYS
     Route: 065
     Dates: start: 20180607, end: 20180611
  3. CYTARABINE [Suspect]
     Active Substance: CYTARABINE
     Indication: Acute myeloid leukaemia
     Dosage: UNK, THERAPY DURATION : 5 DAYS
     Dates: start: 20180607, end: 20180611
  4. CLOTRIMAZOLE [Concomitant]
     Active Substance: CLOTRIMAZOLE
     Indication: Dry skin
     Dosage: 1 APPLICATION (OTHER), FREQUENCY : 2 , FREQUENCY TIME : 1 DAYS,THERAPY DURATION : 6 DAYS
     Dates: start: 20180607, end: 20180612
  5. COTRIMOXAZOLE [Concomitant]
     Active Substance: SULFAMETHOXAZOLE\TRIMETHOPRIM
     Indication: Prophylaxis
     Dosage: 2X/DAY FOR MON, WED + FRIDAYS, UNIT DOSE : 960 MG, FREQUENCY TIME : 1 CYCLICAL
     Dates: start: 20180608
  6. CYCLIZINE [Concomitant]
     Active Substance: CYCLIZINE
     Indication: Nausea
     Dosage: 150 MILLIGRAM DAILY; UNIT DOSE : 50 MG, FREQUENCY : 3 , FREQUENCY TIME : 1 DAYS
     Dates: start: 20180424
  7. CYCLIZINE [Concomitant]
     Active Substance: CYCLIZINE
     Indication: Vomiting
  8. LEVOMEPROMAZINE [Concomitant]
     Active Substance: LEVOMEPROMAZINE
     Indication: Nausea
     Dosage: 6 MILLIGRAM DAILY; UNIT DOSE : 3 MG, FREQUENCY : 2 , FREQUENCY TIME : 1 DAYS
     Dates: start: 20180610
  9. LEVOMEPROMAZINE [Concomitant]
     Active Substance: LEVOMEPROMAZINE
     Indication: Vomiting
  10. OCTENISAN [Concomitant]
     Indication: Antimicrobial susceptibility test
     Dosage: 1 APPLICATION (OTHER) 28 DAYS, FREQUENCY TIME : 1 DAYS
     Dates: start: 20180607
  11. ONDANSETRON [Concomitant]
     Active Substance: ONDANSETRON
     Indication: Antiemetic supportive care
     Dosage: 24 MILLIGRAM DAILY; UNIT DOSE : 8 MG, FREQUENCY : 3  , FREQUENCY TIME : 1 DAYS
     Dates: start: 20180423
  12. ACETAMINOPHEN [Concomitant]
     Active Substance: ACETAMINOPHEN
     Indication: Pain
     Dosage: 1 GRAM DAILY; UNIT DOSE : 1 GRAM, FREQUENCY : 1 , FREQUENCY TIME : 1 DAYS
     Dates: start: 20180420
  13. PREDNISOLONE [Concomitant]
     Active Substance: PREDNISOLONE
     Indication: Prophylaxis
     Dosage: 1 (OTHER) (1 DROP IN BOTH EYES EVERY 2 HOURS), FREQUENCY TIME : 1 CYCLICAL
     Dates: start: 20180609
  14. VORICONAZOLE [Concomitant]
     Active Substance: VORICONAZOLE
     Indication: Antifungal treatment
     Dosage: 400 MILLIGRAM DAILY; UNIT DOSE : 200 MG, FREQUENCY : 2 , FREQUENCY TIME : 1 DAYS
     Dates: start: 20180607

REACTIONS (1)
  - Febrile neutropenia [Recovered/Resolved]

NARRATIVE: CASE EVENT DATE: 20180622
